FAERS Safety Report 8586335-X (Version None)
Quarter: 2012Q3

REPORT INFORMATION
  Report Type: 
  Country: None (occurrence: None)
  Receive Date: 20120730
  Receipt Date: 20120720
  Transmission Date: 20120928
  Serious: Yes (Other)
  Sender: FDA-Public Use
  Company Number: AUR-APL-2012-03054

PATIENT
  Age: 28 Year
  Sex: Female

DRUGS (1)
  1. CEFTRIAXONE [Suspect]
     Indication: PRODUCT USED FOR UNKNOWN INDICATION
     Dosage: 4.0 G DAILY, INTRAVENOUS
     Route: 042

REACTIONS (4)
  - BLOOD CREATININE INCREASED [None]
  - FLANK PAIN [None]
  - HYDRONEPHROSIS [None]
  - ANURIA [None]
